FAERS Safety Report 13549293 (Version 1)
Quarter: 2017Q2

REPORT INFORMATION
  Report Type: Spontaneous
  Country: NO (occurrence: NO)
  Receive Date: 20170516
  Receipt Date: 20170516
  Transmission Date: 20170830
  Serious: Yes (Death)
  Sender: FDA-Public Use
  Company Number: NO-ACCORD-051523

PATIENT
  Age: 24 Year
  Sex: Female

DRUGS (1)
  1. CISPLATIN. [Suspect]
     Active Substance: CISPLATIN
     Indication: TONGUE CANCER METASTATIC
     Route: 051
     Dates: start: 20170203, end: 20170210

REACTIONS (4)
  - Neutropenia [Fatal]
  - Thrombocytopenia [Fatal]
  - Bone marrow failure [Fatal]
  - Fungal infection [Fatal]

NARRATIVE: CASE EVENT DATE: 201702
